FAERS Safety Report 9402232 (Version 2)
Quarter: 2014Q1

REPORT INFORMATION
  Report Type: Spontaneous
  Country: CA (occurrence: CA)
  Receive Date: 20130716
  Receipt Date: 20140306
  Transmission Date: 20141002
  Serious: Yes (Hospitalization, Other)
  Sender: FDA-Public Use
  Company Number: CA-ASTRAZENECA-2013SE51038

PATIENT
  Age: 39 Year
  Sex: Female
  Weight: 88.5 kg

DRUGS (8)
  1. SEROQUEL XR [Suspect]
     Indication: SCHIZOPHRENIA
     Route: 048
  2. SEROQUEL XR [Suspect]
     Indication: SCHIZOPHRENIA
     Route: 048
     Dates: start: 2009
  3. SEROQUEL XR [Suspect]
     Indication: SCHIZOPHRENIA
     Route: 048
     Dates: start: 2009
  4. PROGESTERONE [Suspect]
     Route: 065
     Dates: start: 201207
  5. LEVOTHYROXINE [Concomitant]
  6. IRON SUPPLEMENTS [Concomitant]
  7. CHLORPROMAZINE [Concomitant]
     Indication: DYSPHONIA
     Route: 048
     Dates: start: 2012
  8. HARMONE THERAPY [Concomitant]
     Indication: MENORRHAGIA
     Dates: start: 2013

REACTIONS (9)
  - Menorrhagia [Unknown]
  - Embolism [Unknown]
  - Adenocarcinoma [Unknown]
  - Vitamin B12 increased [Unknown]
  - Headache [Unknown]
  - Ear discomfort [Unknown]
  - Weight increased [Unknown]
  - Dizziness [Unknown]
  - Tachycardia [Unknown]
